FAERS Safety Report 9579324 (Version 1)
Quarter: 2013Q4

REPORT INFORMATION
  Report Type: Spontaneous
  Country: US (occurrence: US)
  Receive Date: 20131001
  Receipt Date: 20131001
  Transmission Date: 20140711
  Serious: No
  Sender: FDA-Public Use
  Company Number: US-AMGEN-USASP2013017450

PATIENT
  Age: 45 Year
  Sex: Female
  Weight: 100.68 kg

DRUGS (4)
  1. ENBREL [Suspect]
     Indication: PSORIASIS
     Dosage: UNK
     Route: 058
     Dates: start: 2011, end: 2011
  2. LASIX                              /00032601/ [Concomitant]
     Dosage: UNK
  3. POTASSIUM [Concomitant]
     Dosage: UNK
  4. STELERA [Concomitant]
     Dosage: UNK

REACTIONS (1)
  - Psoriasis [Unknown]
